FAERS Safety Report 13713521 (Version 2)
Quarter: 2017Q3

REPORT INFORMATION
  Report Type: Spontaneous
  Country: FR (occurrence: FR)
  Receive Date: 20170704
  Receipt Date: 20170707
  Transmission Date: 20171127
  Serious: Yes (Other)
  Sender: FDA-Public Use
  Company Number: FR-SUN PHARMACEUTICAL INDUSTRIES LTD-2017RR-144560

PATIENT
  Age: 9 Year
  Sex: Female

DRUGS (4)
  1. LORAZEPAM. [Concomitant]
     Active Substance: LORAZEPAM
     Indication: CATATONIA
  2. RISPERIDONE. [Suspect]
     Active Substance: RISPERIDONE
     Indication: PSYCHOTIC SYMPTOM
     Dosage: 1.5 MG, DAILY
     Route: 065
  3. RISPERIDONE. [Suspect]
     Active Substance: RISPERIDONE
     Indication: CATATONIA
     Dosage: 2.5 MG, DAILY
     Route: 065
  4. LORAZEPAM. [Concomitant]
     Active Substance: LORAZEPAM
     Indication: PSYCHOTIC SYMPTOM
     Dosage: 3.5 MG, DAILY
     Route: 065

REACTIONS (1)
  - Condition aggravated [Recovering/Resolving]
